FAERS Safety Report 12074729 (Version 1)
Quarter: 2016Q1

REPORT INFORMATION
  Report Type: Spontaneous
  Country: GB (occurrence: GB)
  Receive Date: 20160212
  Receipt Date: 20160212
  Transmission Date: 20160526
  Serious: Yes (Death, Other)
  Sender: FDA-Public Use
  Company Number: GB-TEVA-632131ACC

PATIENT
  Age: 35 Year
  Sex: Male
  Weight: 65 kg

DRUGS (8)
  1. AMFETAMINE [Suspect]
     Active Substance: AMPHETAMINE
  2. DIAMORPHINE [Suspect]
     Active Substance: DIACETYLMORPHINE
  3. ZAPONEX [Suspect]
     Active Substance: CLOZAPINE
     Route: 048
     Dates: start: 20040928, end: 200609
  4. ZAPONEX [Suspect]
     Active Substance: CLOZAPINE
     Route: 048
     Dates: start: 20060915, end: 200805
  5. ZAPONEX [Suspect]
     Active Substance: CLOZAPINE
     Route: 048
     Dates: start: 20080509, end: 200903
  6. MORPHINE [Suspect]
     Active Substance: MORPHINE
  7. ZAPONEX [Suspect]
     Active Substance: CLOZAPINE
     Route: 048
     Dates: start: 20090402, end: 20100701
  8. SULPIRIDE [Concomitant]
     Active Substance: SULPIRIDE

REACTIONS (4)
  - Overdose [Fatal]
  - Arteriosclerosis coronary artery [Not Recovered/Not Resolved]
  - Aortic arteriosclerosis [Not Recovered/Not Resolved]
  - Pulmonary oedema [Not Recovered/Not Resolved]

NARRATIVE: CASE EVENT DATE: 20100701
